FAERS Safety Report 9312857 (Version 1)
Quarter: 2013Q2

REPORT INFORMATION
  Report Type: Report from Study
  Country: BE (occurrence: BE)
  Receive Date: 20130528
  Receipt Date: 20130528
  Transmission Date: 20140414
  Serious: Yes (Hospitalization)
  Sender: FDA-Public Use
  Company Number: BE-BAXTER-2013BAX019145

PATIENT
  Age: 65 Year
  Sex: Female

DRUGS (7)
  1. TISSUCOL DUO 500 FIBRIN SEALANT [Suspect]
     Indication: INCISIONAL HERNIA REPAIR
     Dates: start: 20130125, end: 20130125
  2. TISSUCOL DUO 500 FIBRIN SEALANT [Suspect]
     Dates: start: 20130125, end: 20130125
  3. CLEXANE [Concomitant]
     Indication: THROMBOSIS PROPHYLAXIS
     Route: 058
     Dates: start: 20130424, end: 20130424
  4. DIPIDOLOR [Concomitant]
     Indication: PAIN MANAGEMENT
     Route: 030
     Dates: start: 20130424, end: 20130424
  5. TRANDONAL [Concomitant]
     Indication: PAIN MANAGEMENT
     Route: 048
     Dates: start: 20130424, end: 20130424
  6. ZOFRAN [Concomitant]
     Indication: PROPHYLAXIS
     Route: 042
     Dates: start: 20130424, end: 20130424
  7. PARACETAMOL [Concomitant]
     Indication: PAIN MANAGEMENT
     Route: 042
     Dates: start: 20130424, end: 20130425

REACTIONS (1)
  - Seroma [Recovered/Resolved]
